FAERS Safety Report 9752203 (Version 1)
Quarter: 2013Q4

REPORT INFORMATION
  Report Type: Spontaneous
  Country: IT (occurrence: IT)
  Receive Date: 20131213
  Receipt Date: 20131213
  Transmission Date: 20140711
  Serious: Yes (Other)
  Sender: FDA-Public Use
  Company Number: IT-SA-2013SA126584

PATIENT
  Age: 79 Year
  Sex: Male

DRUGS (8)
  1. SOLOSA [Suspect]
     Indication: TYPE 2 DIABETES MELLITUS
     Route: 048
     Dates: start: 20130101, end: 20131126
  2. GLIBOMET [Suspect]
     Indication: TYPE 2 DIABETES MELLITUS
     Route: 048
     Dates: start: 20130101, end: 20131126
  3. SERTRALINE [Concomitant]
     Route: 048
  4. COTAREG [Concomitant]
     Route: 048
  5. CARDIOASPIRIN [Concomitant]
     Route: 048
  6. PEPTAZOL [Concomitant]
     Route: 048
  7. LEDERFOLIN [Concomitant]
     Route: 048
  8. ANTITHROMBOTIC AGENTS [Concomitant]
     Route: 048

REACTIONS (5)
  - Fall [Unknown]
  - Hypoglycaemia [Recovering/Resolving]
  - Balance disorder [Recovering/Resolving]
  - Malaise [Recovering/Resolving]
  - Hyperhidrosis [Recovering/Resolving]
